FAERS Safety Report 25836864 (Version 3)
Quarter: 2025Q4

REPORT INFORMATION
  Report Type: Spontaneous
  Country: EU (occurrence: EU)
  Receive Date: 20250923
  Receipt Date: 20251105
  Transmission Date: 20260117
  Serious: No
  Sender: PFIZER
  Company Number: EU-PFIZER INC-202500179958

PATIENT
  Age: 76 Year
  Sex: Female
  Weight: 64 kg

DRUGS (1)
  1. FRAGMIN [Suspect]
     Active Substance: DALTEPARIN SODIUM
     Indication: Hip surgery
     Dosage: DAILY (6 WEEKS)
     Route: 058
     Dates: start: 20250820

REACTIONS (3)
  - Needle issue [Unknown]
  - Product packaging difficult to open [Unknown]
  - Device difficult to use [Unknown]
